FAERS Safety Report 6358648-3 (Version None)
Quarter: 2009Q3

REPORT INFORMATION
  Report Type: 
  Country: None (occurrence: None)
  Receive Date: 20090914
  Receipt Date: 20090903
  Transmission Date: 20100115
  Serious: Yes (Disabling)
  Sender: FDA-Public Use
  Company Number: 2009SP018393

PATIENT
  Age: 54 Year
  Sex: Male

DRUGS (2)
  1. PEG-INTRON [Suspect]
     Indication: HEPATITIS C
     Dosage: 150 MCG; QW; IM
     Route: 030
     Dates: start: 20090515, end: 20090731
  2. RIBAVIRIN [Suspect]
     Indication: HEPATITIS C
     Dosage: 600 MG; BID;
     Dates: start: 20090515, end: 20090731

REACTIONS (10)
  - CONSTIPATION [None]
  - DEPRESSION [None]
  - DYSURIA [None]
  - EATING DISORDER [None]
  - FATIGUE [None]
  - IMPAIRED WORK ABILITY [None]
  - INFLUENZA LIKE ILLNESS [None]
  - PENIS DISORDER [None]
  - SLEEP DISORDER [None]
  - WEIGHT DECREASED [None]
